FAERS Safety Report 7796408-7 (Version None)
Quarter: 2011Q4

REPORT INFORMATION
  Report Type: 
  Country: None (occurrence: None)
  Receive Date: 20111005
  Receipt Date: 20110926
  Transmission Date: 20120403
  Serious: No
  Sender: FDA-Public Use
  Company Number: US-BIOGENIDEC-2011BI037008

PATIENT
  Sex: Female

DRUGS (2)
  1. NOVANTRONE [Concomitant]
  2. TYSABRI [Suspect]
     Indication: MULTIPLE SCLEROSIS
     Route: 042
     Dates: start: 20080703, end: 20110315

REACTIONS (3)
  - VISUAL ACUITY REDUCED [None]
  - MOTOR DYSFUNCTION [None]
  - GAIT DISTURBANCE [None]
